FAERS Safety Report 11121983 (Version 1)
Quarter: 2015Q2

REPORT INFORMATION
  Report Type: Spontaneous
  Country: JP (occurrence: JP)
  Receive Date: 20150519
  Receipt Date: 20150519
  Transmission Date: 20150821
  Serious: Yes (Other)
  Sender: FDA-Public Use
  Company Number: JP-PFIZER INC-2015165595

PATIENT
  Age: 7 Decade
  Sex: Female

DRUGS (1)
  1. LYRICA [Suspect]
     Active Substance: PREGABALIN
     Route: 048

REACTIONS (3)
  - Dementia [Recovered/Resolved]
  - Amnesia [Recovered/Resolved]
  - Abnormal behaviour [Recovered/Resolved]
